FAERS Safety Report 4851879-0 (Version None)
Quarter: 2005Q4

REPORT INFORMATION
  Report Type: 
  Country: None (occurrence: None)
  Receive Date: 20051125
  Receipt Date: 20050608
  Transmission Date: 20060501
  Serious: Yes (Other)
  Sender: FDA-Public Use
  Company Number: 2005043304

PATIENT
  Age: 75 Year
  Sex: Female
  Weight: 68.0396 kg

DRUGS (7)
  1. TIKOSYN [Suspect]
     Indication: ATRIAL FIBRILLATION
     Dosage: (ONCE A DAY) ORAL
     Route: 048
     Dates: start: 20050307
  2. SOTALOL HCL [Concomitant]
  3. FLECAINIDE ACETATE [Concomitant]
  4. VERAPAMIL [Concomitant]
  5. DILTIAZEM HYDROCHLORIDE [Concomitant]
  6. HYDROCHLOROTHIAZIDE [Concomitant]
  7. DIGOXIN [Concomitant]

REACTIONS (5)
  - DYSPNOEA [None]
  - EXTRASYSTOLES [None]
  - HEADACHE [None]
  - LUNG INFECTION [None]
  - PALPITATIONS [None]
